FAERS Safety Report 6312877-3 (Version None)
Quarter: 2009Q3

REPORT INFORMATION
  Report Type: 
  Country: None (occurrence: None)
  Receive Date: 20090814
  Receipt Date: 20090803
  Transmission Date: 20100115
  Serious: Yes (Death)
  Sender: FDA-Public Use
  Company Number: 2009US000011

PATIENT
  Age: 75 Year
  Sex: Male
  Weight: 81.2 kg

DRUGS (20)
  1. ENTEREG [Suspect]
     Indication: POSTOPERATIVE ILEUS
     Dosage: 12 MG; BID; PO
     Route: 048
     Dates: start: 20081208, end: 20081210
  2. POTASSIUM CHLORIDE [Concomitant]
  3. MAGNESIUM [Concomitant]
  4. DIGOXIN [Concomitant]
  5. DILTIAZEM [Concomitant]
  6. FUROSEMIDE [Concomitant]
  7. FENTANYL [Concomitant]
  8. MORPHINE [Concomitant]
  9. HYDROCODONE BITARTRATE + ACETAMINOPHEN [Concomitant]
  10. APAP TAB [Concomitant]
  11. KETOROLAC TROMETHAMINE [Concomitant]
  12. ALBUTEROL SULFATE AND IPRATROPIUM BROMIDE [Concomitant]
  13. DIPHENHYDRAMINE HCL [Concomitant]
  14. ENOXAPARIN SODIUM [Concomitant]
  15. METOCLOPRAMIDE [Concomitant]
  16. MILK OF MAGNESIA TAB [Concomitant]
  17. ONDANSETRON [Concomitant]
  18. PANTOPRAZOLE SODIUM [Concomitant]
  19. LIDOCAINE [Concomitant]
  20. ALBUMIN (HUMAN) [Concomitant]

REACTIONS (1)
  - VENTRICULAR FIBRILLATION [None]
